FAERS Safety Report 8832427 (Version 2)
Quarter: 2012Q4

REPORT INFORMATION
  Report Type: Spontaneous
  Country: IT (occurrence: None)
  Receive Date: 20121005
  Receipt Date: 20121015
  Transmission Date: 20130627
  Serious: Yes (Hospitalization)
  Sender: FDA-Public Use
  Company Number: IT-20120094

PATIENT
  Age: 59 Year
  Sex: Female

DRUGS (4)
  1. LIPIODOL (ETHIODIZED OIL) (ETHIODIZED OIL) [Suspect]
     Indication: HEPATIC EMBOLISATION
     Dosage: (4ml, 1 in 1 total)
     Route: 013
     Dates: start: 20120730, end: 20120730
  2. NORVASC [Concomitant]
  3. HUMALOG (INSULIN LISPRO)(INSULIN LISPRO) [Concomitant]
  4. METOPROLOL (METOPROLOL)(METOPROLOL) [Concomitant]

REACTIONS (3)
  - Dyspnoea [None]
  - Hypotension [None]
  - Oxygen saturation decreased [None]
